FAERS Safety Report 4810596-3 (Version None)
Quarter: 2005Q4

REPORT INFORMATION
  Report Type: 
  Country: None (occurrence: None)
  Receive Date: 20051024
  Receipt Date: 20051014
  Transmission Date: 20060501
  Serious: Yes (Other)
  Sender: FDA-Public Use
  Company Number: 2005142821

PATIENT
  Sex: Male
  Weight: 94.3482 kg

DRUGS (2)
  1. LIPITOR [Suspect]
     Indication: BLOOD CHOLESTEROL
     Dosage: 10 MG (10 MG, DAILY)
  2. ACTOS [Concomitant]

REACTIONS (4)
  - MUSCLE SPASMS [None]
  - MYALGIA [None]
  - RENAL FAILURE [None]
  - THERAPY NON-RESPONDER [None]
